FAERS Safety Report 12504834 (Version 1)
Quarter: 2016Q2

REPORT INFORMATION
  Report Type: Report from Study
  Country: CA (occurrence: CA)
  Receive Date: 20160628
  Receipt Date: 20160628
  Transmission Date: 20160815
  Serious: Yes (Hospitalization)
  Sender: FDA-Public Use
  Company Number: CA-JNJFOC-20160621274

PATIENT
  Age: 82 Year
  Sex: Female
  Weight: 74 kg

DRUGS (2)
  1. ACETAMINOPHEN. [Concomitant]
     Active Substance: ACETAMINOPHEN
     Indication: PREMEDICATION
     Route: 065
  2. REMICADE [Suspect]
     Active Substance: INFLIXIMAB
     Indication: CROHN^S DISEASE
     Route: 042
     Dates: start: 20100603

REACTIONS (3)
  - Off label use [Unknown]
  - Cystitis [Unknown]
  - Product use issue [Unknown]

NARRATIVE: CASE EVENT DATE: 20100603
